FAERS Safety Report 7062757-3 (Version None)
Quarter: 2010Q4

REPORT INFORMATION
  Report Type: 
  Country: None (occurrence: None)
  Receive Date: 20101026
  Receipt Date: 20100122
  Transmission Date: 20110411
  Serious: No
  Sender: FDA-Public Use
  Company Number: US-PFIZER INC-2010009687

PATIENT
  Age: 62 Year
  Sex: Male
  Weight: 99.773 kg

DRUGS (6)
  1. LIPITOR [Suspect]
     Dosage: UNK
  2. INSULIN GLARGINE [Concomitant]
     Dosage: UNK
  3. INSULIN ASPART [Concomitant]
     Dosage: UNK
  4. TOPROL-XL [Concomitant]
     Dosage: UNK
  5. AVAPRO [Concomitant]
     Dosage: UNK
  6. PRILOSEC [Concomitant]
     Dosage: UNK

REACTIONS (1)
  - AGEUSIA [None]
